FAERS Safety Report 9627098 (Version 1)
Quarter: 2013Q4

REPORT INFORMATION
  Report Type: Spontaneous
  Country: US (occurrence: None)
  Receive Date: 20131011
  Receipt Date: 20131011
  Transmission Date: 20140711
  Serious: Yes (Other)
  Sender: FDA-Public Use
  Company Number: 1252673

PATIENT
  Age: 49 Year
  Sex: Female
  Weight: 108.86 kg

DRUGS (7)
  1. NOSTRILLA [Suspect]
     Dosage: SPRAYED NASALLY ONCE
     Route: 045
     Dates: start: 20130915
  2. NOSTRILLA [Suspect]
     Dosage: SPRAYED NASALLY ONCE
     Route: 045
     Dates: start: 20131002
  3. HUMALOG [Concomitant]
  4. DIOVAN [Concomitant]
  5. NITROFURANTOIN [Concomitant]
  6. LIPITOR [Concomitant]
  7. LORITAB [Concomitant]

REACTIONS (4)
  - Headache [None]
  - Nasal discomfort [None]
  - Sinusitis [None]
  - Pneumonia [None]
